FAERS Safety Report 25554114 (Version 1)
Quarter: 2025Q3

REPORT INFORMATION
  Report Type: Spontaneous
  Country: US (occurrence: None)
  Receive Date: 20250714
  Receipt Date: 20250714
  Transmission Date: 20251020
  Serious: Yes (unspecified)
  Sender: FDA-CTU
  Company Number: None

PATIENT
  Age: 44 Year
  Sex: Female
  Weight: 83.25 kg

DRUGS (4)
  1. ESCITALOPRAM OXALATE [Suspect]
     Active Substance: ESCITALOPRAM OXALATE
     Indication: Anxiety
     Dosage: FREQUENCY : DAILY;?
     Route: 048
  2. MAGNESIUM GLYCINATE [Concomitant]
     Active Substance: MAGNESIUM GLYCINATE
  3. VITAMIN D [Concomitant]
     Active Substance: VITAMIN D NOS
  4. MELATONIN [Concomitant]
     Active Substance: MELATONIN

REACTIONS (14)
  - Drug ineffective [None]
  - Withdrawal syndrome [None]
  - Insomnia [None]
  - Dyskinesia [None]
  - Anxiety [None]
  - Panic reaction [None]
  - Palpitations [None]
  - Diarrhoea [None]
  - Anger [None]
  - Agitation [None]
  - Brain fog [None]
  - Amnesia [None]
  - Visual impairment [None]
  - Suicidal ideation [None]

NARRATIVE: CASE EVENT DATE: 20250302
